FAERS Safety Report 6045226-9 (Version None)
Quarter: 2009Q1

REPORT INFORMATION
  Report Type: 
  Country: None (occurrence: None)
  Receive Date: 20090121
  Receipt Date: 20090116
  Transmission Date: 20090719
  Serious: Yes (Other)
  Sender: FDA-Public Use
  Company Number: US-BAYER-200840962NA

PATIENT
  Age: 61 Year
  Sex: Female

DRUGS (1)
  1. AVELOX [Suspect]
     Indication: SINUSITIS
     Dosage: TOTAL DAILY DOSE: 1200 MG  UNIT DOSE: 400 MG
     Dates: start: 20081212, end: 20081215

REACTIONS (4)
  - AGITATION [None]
  - CONFUSIONAL STATE [None]
  - NO ADVERSE EVENT [None]
  - SPEECH DISORDER [None]
